FAERS Safety Report 16074120 (Version 3)
Quarter: 2019Q2

REPORT INFORMATION
  Report Type: Report from Study
  Country: CA (occurrence: CA)
  Receive Date: 20190314
  Receipt Date: 20190418
  Transmission Date: 20190711
  Serious: Yes (Other)
  Sender: FDA-Public Use
  Company Number: CA-PFIZER INC-2019112921

PATIENT
  Sex: Male

DRUGS (5)
  1. BLEOMYCIN SULFATE [Suspect]
     Active Substance: BLEOMYCIN SULFATE
     Indication: GERM CELL CANCER METASTATIC
     Dosage: DURING 1ST CYCLE AND DURING INTENSIFIED CHEMOTHERAPY AT CYCLE 2
  2. IFOSFAMIDE. [Suspect]
     Active Substance: IFOSFAMIDE
     Indication: GERM CELL CANCER METASTATIC
     Dosage: DURING INTENSIFIED CHEMOTHERAPY
     Route: 065
  3. ETOPOSIDE. [Suspect]
     Active Substance: ETOPOSIDE
     Indication: GERM CELL CANCER METASTATIC
     Dosage: DURING 1ST CYCLE AND DURING INTENSIFIED CHEMOTHERAPY AT CYCLE 2
  4. PACLITAXEL. [Suspect]
     Active Substance: PACLITAXEL
     Indication: GERM CELL CANCER METASTATIC
     Dosage: DURING INTENSIFIED CHEMOTHERAPY
  5. CISPLATIN. [Suspect]
     Active Substance: CISPLATIN
     Indication: GERM CELL CANCER METASTATIC
     Dosage: DURING 1ST CYCLE AND DURING INTENSIFIED CHEMOTHERAPY AT CYCLE 2

REACTIONS (1)
  - Neuropathy peripheral [Unknown]
